FAERS Safety Report 7624102-1 (Version None)
Quarter: 2011Q3

REPORT INFORMATION
  Report Type: 
  Country: None (occurrence: None)
  Receive Date: 20110720
  Receipt Date: 20110712
  Transmission Date: 20111222
  Serious: Yes (Other)
  Sender: FDA-Public Use
  Company Number: US-NOVOPROD-331875

PATIENT
  Sex: Male

DRUGS (1)
  1. NOVOLIN 70/30 [Suspect]
     Dosage: UNK IU, QD
     Route: 058
     Dates: start: 19970101

REACTIONS (1)
  - LOSS OF CONSCIOUSNESS [None]
